FAERS Safety Report 8266294-X (Version None)
Quarter: 2012Q2

REPORT INFORMATION
  Report Type: 
  Country: None (occurrence: None)
  Receive Date: 20120406
  Receipt Date: 20120402
  Transmission Date: 20120825
  Serious: Yes (Hospitalization, Other)
  Sender: FDA-Public Use
  Company Number: US-AMGEN-USASP2012021076

PATIENT
  Sex: Female

DRUGS (1)
  1. PROCRIT [Suspect]
     Indication: PRODUCT USED FOR UNKNOWN INDICATION
     Dosage: UNK
     Route: 058

REACTIONS (9)
  - BLOOD PRESSURE FLUCTUATION [None]
  - ENTERAL NUTRITION [None]
  - VOMITING [None]
  - BLOOD PRESSURE DECREASED [None]
  - RECTAL HAEMORRHAGE [None]
  - HAEMORRHAGE [None]
  - HAEMOGLOBIN DECREASED [None]
  - PNEUMONIA [None]
  - TONGUE DISCOLOURATION [None]
